FAERS Safety Report 7686376-0 (Version None)
Quarter: 2011Q3

REPORT INFORMATION
  Report Type: 
  Country: None (occurrence: None)
  Receive Date: 20110816
  Receipt Date: 20110811
  Transmission Date: 20111222
  Serious: Yes (Other)
  Sender: FDA-Public Use
  Company Number: BR-PFIZER INC-2011185657

PATIENT
  Age: 51 Year
  Sex: Female
  Weight: 65 kg

DRUGS (3)
  1. LYRICA [Suspect]
     Indication: FIBROMYALGIA
     Dosage: 75 MG (2 TABLETS DAILY)
     Route: 048
     Dates: end: 20110801
  2. SYNTHROID [Concomitant]
     Indication: HYPOTHYROIDISM
  3. LYRICA [Suspect]
     Dosage: 150 MG (2 TABLETS DAILY)
     Route: 048
     Dates: start: 20110811, end: 20110811

REACTIONS (5)
  - HYPOAESTHESIA ORAL [None]
  - HYPOAESTHESIA [None]
  - BODY TEMPERATURE INCREASED [None]
  - DIZZINESS [None]
  - TACHYCARDIA [None]
